FAERS Safety Report 17064390 (Version 3)
Quarter: 2019Q4

REPORT INFORMATION
  Report Type: Spontaneous
  Country: US (occurrence: US)
  Receive Date: 20191122
  Receipt Date: 20191204
  Transmission Date: 20200122
  Serious: No
  Sender: FDA-Public Use
  Company Number: US-PFIZER INC-2019502929

PATIENT
  Age: 10 Year
  Sex: Male

DRUGS (2)
  1. GENOTROPIN MQ [Suspect]
     Active Substance: SOMATROPIN
     Indication: BODY HEIGHT BELOW NORMAL
     Dosage: 1 MG, DAILY
     Dates: start: 20121104
  2. GENOTROPIN MQ [Suspect]
     Active Substance: SOMATROPIN
     Indication: GROWTH HORMONE DEFICIENCY

REACTIONS (6)
  - Insomnia [Unknown]
  - Abnormal behaviour [Unknown]
  - Irregular sleep wake rhythm disorder [Unknown]
  - Nightmare [Unknown]
  - Abdominal pain upper [Unknown]
  - Headache [Unknown]
